FAERS Safety Report 4638287-2 (Version None)
Quarter: 2005Q2

REPORT INFORMATION
  Report Type: 
  Country: None (occurrence: None)
  Receive Date: 20050418
  Receipt Date: 20040217
  Transmission Date: 20051028
  Serious: Yes (Other)
  Sender: FDA-Public Use
  Company Number: A106

PATIENT
  Age: 69 Year
  Sex: Female
  Weight: 80.7403 kg

DRUGS (8)
  1. ALBUTEROL SULFATE [Suspect]
     Indication: CHRONIC OBSTRUCTIVE PULMONARY DISEASE
     Dosage: 3 CC INHALATION
     Route: 055
     Dates: start: 20050215
  2. ATROVENT [Concomitant]
  3. AZMACORT [Concomitant]
  4. ALLEGRA [Concomitant]
  5. PRED [Concomitant]
  6. COZAAR [Concomitant]
  7. GUIFENESIN [Concomitant]
  8. ASPIRIN [Concomitant]

REACTIONS (3)
  - EATING DISORDER [None]
  - PHARYNGITIS STREPTOCOCCAL [None]
  - STOMATITIS [None]
